FAERS Safety Report 8377911-8 (Version None)
Quarter: 2012Q2

REPORT INFORMATION
  Report Type: 
  Country: None (occurrence: None)
  Receive Date: 20120522
  Receipt Date: 20120515
  Transmission Date: 20120825
  Serious: Yes (Other)
  Sender: FDA-Public Use
  Company Number: SA-BIOMARINP-002572

PATIENT
  Sex: Female
  Weight: 11.4 kg

DRUGS (3)
  1. OXYGEN VENTILATION [Concomitant]
  2. NAGLAZYME [Suspect]
     Indication: MUCOPOLYSACCHARIDOSIS VI
     Route: 041
     Dates: start: 20120502
  3. FENISTIL [Concomitant]
     Indication: PREMEDICATION

REACTIONS (1)
  - SLEEP APNOEA SYNDROME [None]
